FAERS Safety Report 9333709 (Version 2)
Quarter: 2013Q4

REPORT INFORMATION
  Report Type: Spontaneous
  Country: US (occurrence: US)
  Receive Date: 20130606
  Receipt Date: 20131008
  Transmission Date: 20140711
  Serious: No
  Sender: FDA-Public Use
  Company Number: US-AMGEN-USASP2012080284

PATIENT
  Age: 49 Year
  Sex: Female
  Weight: 61.68 kg

DRUGS (7)
  1. PROLIA [Suspect]
     Indication: OSTEOPOROSIS POSTMENOPAUSAL
     Dosage: 60 MG/CC, Q6MO
     Route: 058
     Dates: start: 20111114, end: 20121203
  2. PROLIA [Suspect]
     Dosage: UNK
  3. ZIAC [Concomitant]
     Indication: HYPERTENSION
     Dosage: 2 MG, QD
     Route: 048
     Dates: start: 2010
  4. ESTRACE [Concomitant]
     Dosage: 2 MG, QD
     Route: 048
     Dates: start: 2010
  5. LOVAZA [Concomitant]
  6. VITAMIN D                          /00107901/ [Concomitant]
     Dosage: 1000-2000 IU, QD
     Dates: start: 2010
  7. VENLAFAXINE HYDROCHLORIDE [Concomitant]

REACTIONS (3)
  - Muscle fatigue [Recovering/Resolving]
  - Hypokinesia [Recovering/Resolving]
  - Pain in extremity [Recovering/Resolving]
